FAERS Safety Report 7912285-5 (Version None)
Quarter: 2011Q4

REPORT INFORMATION
  Report Type: 
  Country: None (occurrence: None)
  Receive Date: 20111114
  Receipt Date: 20111017
  Transmission Date: 20120403
  Serious: Yes (Other)
  Sender: FDA-Public Use
  Company Number: RS-BAYER-2011-100776

PATIENT
  Age: 25 Year
  Sex: Female

DRUGS (1)
  1. ESTRADIOL VALERATE/DIENOGEST [Suspect]

REACTIONS (5)
  - URINARY RETENTION [None]
  - PALPITATIONS [None]
  - FLATULENCE [None]
  - HEADACHE [None]
  - VOMITING [None]
